FAERS Safety Report 4625954-X (Version None)
Quarter: 2005Q1

REPORT INFORMATION
  Report Type: 
  Country: None (occurrence: None)
  Receive Date: 20050330
  Receipt Date: 20050315
  Transmission Date: 20050727
  Serious: Yes (Other)
  Sender: FDA-Public Use
  Company Number: 8008456

PATIENT
  Age: 32 Year
  Sex: Male
  Weight: 72.7 kg

DRUGS (7)
  1. KEPPRA [Suspect]
     Indication: EPILEPSY
     Dosage: 500 MG 2/D PO
     Route: 048
     Dates: start: 20040123, end: 20041231
  2. KEPPRA [Suspect]
     Indication: EPILEPSY
     Dosage: PO
     Route: 048
     Dates: start: 20050110
  3. TAVIST [Concomitant]
  4. AMOXICILLIN [Concomitant]
  5. PHENERGAN EXPECTORANT W/ CODEINE [Concomitant]
  6. DILANTIN [Concomitant]
  7. EXCEDRIN (MIGRAINE) [Concomitant]

REACTIONS (6)
  - ABASIA [None]
  - COORDINATION ABNORMAL [None]
  - DISORIENTATION [None]
  - DIZZINESS [None]
  - FATIGUE [None]
  - PHARMACEUTICAL PRODUCT COMPLAINT [None]
